FAERS Safety Report 7089876-X (Version None)
Quarter: 2010Q4

REPORT INFORMATION
  Report Type: 
  Country: None (occurrence: None)
  Receive Date: 20101108
  Receipt Date: 20101027
  Transmission Date: 20110411
  Serious: Yes (Death)
  Sender: FDA-Public Use
  Company Number: JP-AMGEN LTD.-KDL439705

PATIENT

DRUGS (32)
  1. PANITUMUMAB [Suspect]
     Indication: COLORECTAL CANCER
     Dosage: 6 MG/KG, Q2WK
     Route: 041
     Dates: start: 20100619, end: 20100719
  2. IRINOTECAN HYDROCHLORIDE [Concomitant]
     Indication: COLORECTAL CANCER
     Dosage: 100 MG, Q2WK
     Route: 041
     Dates: start: 20100621, end: 20100719
  3. FLUOROURACIL [Concomitant]
     Indication: COLORECTAL CANCER
     Dosage: 500 MG, Q2WK
     Route: 040
     Dates: start: 20100621, end: 20100719
  4. FLUOROURACIL [Concomitant]
     Dosage: 3500 MG, Q2WK
     Route: 041
     Dates: start: 20100621, end: 20100719
  5. CALCIUM LEVOFOLINATE [Concomitant]
     Indication: COLORECTAL CANCER
     Dosage: 325 MG, Q2WK
     Route: 041
     Dates: start: 20100621, end: 20100719
  6. CORTICOSTEROID NOS [Concomitant]
     Indication: PROPHYLAXIS
     Dosage: UNK UNK, UNK
     Route: 065
  7. OXYCODONE HYDROCHLORIDE [Concomitant]
     Dosage: UNK UNK, UNK
     Route: 048
  8. DUROTEP MT [Concomitant]
     Dosage: UNK UNK, UNK
     Route: 062
  9. DUROTEP MT [Concomitant]
     Route: 062
  10. SULPYRINE [Concomitant]
     Dosage: UNK UNK, UNK
     Route: 048
  11. SULPYRINE [Concomitant]
     Route: 048
  12. SEROTONE [Concomitant]
     Dosage: UNK UNK, UNK
     Route: 042
  13. SEROTONE [Concomitant]
     Route: 042
  14. DEXAMETHASONE [Concomitant]
     Dosage: UNK UNK, UNK
     Route: 042
  15. ALESION [Concomitant]
     Dosage: UNK UNK, UNK
     Route: 048
  16. ALESION [Concomitant]
     Route: 048
  17. CYANOCOBALAMIN [Concomitant]
     Dosage: UNK UNK, UNK
     Route: 048
  18. CYANOCOBALAMIN [Concomitant]
     Route: 048
  19. TRICHLORMETHIAZIDE [Concomitant]
     Dosage: UNK UNK, UNK
     Route: 048
  20. RANITIDINE HYDROCHLORIDE [Concomitant]
     Dosage: UNK UNK, UNK
     Route: 048
  21. FERROUS FUMARATE [Concomitant]
     Dosage: UNK UNK, UNK
     Route: 048
  22. ALLELOCK [Concomitant]
     Indication: RHINITIS ALLERGIC
     Dosage: UNK UNK, UNK
     Route: 048
  23. ALLELOCK [Concomitant]
     Route: 048
  24. BENFOTIAMINE/B6/B12 [Concomitant]
     Dosage: UNK UNK, UNK
     Route: 048
  25. CORTICOSTEROIDS [Concomitant]
     Indication: PROPHYLAXIS
     Route: 065
  26. OXYCONTIN [Concomitant]
     Route: 048
  27. DECADRON [Concomitant]
     Route: 042
  28. FLUITRAN [Concomitant]
     Route: 048
  29. ZANTAC [Concomitant]
     Indication: REFLUX OESOPHAGITIS
     Route: 048
  30. FERRUM [Concomitant]
     Indication: ANAEMIA
     Route: 048
  31. VITAMEDIN [Concomitant]
     Indication: HYPOVITAMINOSIS
     Route: 048
  32. VITAMEDIN [Concomitant]
     Indication: VITAMIN SUPPLEMENTATION
     Route: 048

REACTIONS (4)
  - COLORECTAL CANCER [None]
  - HYPOMAGNESAEMIA [None]
  - RASH [None]
  - STOMATITIS [None]
